FAERS Safety Report 23831948 (Version 1)
Quarter: 2024Q2

REPORT INFORMATION
  Report Type: Spontaneous
  Country: US (occurrence: None)
  Receive Date: 20240507
  Receipt Date: 20240507
  Transmission Date: 20240716
  Serious: Yes (Other)
  Sender: FDA-Public Use
  Company Number: None

PATIENT
  Age: 56 Year
  Sex: Male
  Weight: 66.15 kg

DRUGS (3)
  1. ERTAPENEM SODIUM [Suspect]
     Active Substance: ERTAPENEM SODIUM
     Indication: Osteomyelitis
     Dosage: FREQUENCY : DAILY;?
     Route: 042
     Dates: start: 20240401
  2. ERTAPENEM SODIUM [Suspect]
     Active Substance: ERTAPENEM SODIUM
     Indication: Diabetic foot infection
  3. VANCOMYCIN [Suspect]
     Active Substance: VANCOMYCIN
     Dates: start: 20240401

REACTIONS (3)
  - Hallucination [None]
  - Abnormal dreams [None]
  - Therapy cessation [None]

NARRATIVE: CASE EVENT DATE: 20240506
